FAERS Safety Report 8982809 (Version 1)
Quarter: 2012Q4

REPORT INFORMATION
  Report Type: 
  Country: US (occurrence: US)
  Receive Date: 20121221
  Receipt Date: 20121221
  Transmission Date: 20130627
  Serious: Yes (Other)
  Sender: FDA-Public Use
  Company Number: -DX529-2012DX000270

PATIENT
  Age: 52 Year
  Sex: Female
  Weight: 75.75 kg

DRUGS (6)
  1. KALBITOR [Suspect]
     Indication: HEREDITARY ANGIOEDEMA
     Route: 058
     Dates: start: 20121216, end: 20121216
  2. KALBITOR [Suspect]
     Indication: HEREDITARY ANGIOEDEMA
     Route: 058
     Dates: start: 20121214, end: 20121214
  3. KALBITOR [Suspect]
     Indication: HEREDITARY ANGIOEDEMA
     Route: 058
     Dates: start: 201207
  4. BENADRYL /00000402/ [Concomitant]
     Indication: PRODUCT USED FOR UNKNOWN INDICATION
  5. ZYRTEC [Concomitant]
     Indication: PRODUCT USED FOR UNKNOWN INDICATION
  6. THIAZIDE [Concomitant]
     Indication: PRODUCT USED FOR UNKNOWN INDICATION

REACTIONS (6)
  - Anaphylactic reaction [Recovered/Resolved]
  - Swollen tongue [Recovering/Resolving]
  - Visual impairment [Recovering/Resolving]
  - Emotional distress [Recovering/Resolving]
  - Hereditary angioedema [Unknown]
  - Fatigue [Recovering/Resolving]
